FAERS Safety Report 10561510 (Version 1)
Quarter: 2014Q4

REPORT INFORMATION
  Report Type: Spontaneous
  Country: US (occurrence: US)
  Receive Date: 20141103
  Receipt Date: 20141103
  Transmission Date: 20150529
  Serious: Yes (Hospitalization)
  Sender: FDA-Public Use
  Company Number: US-GILEAD-2014-0120664

PATIENT
  Age: 63 Year
  Sex: Male

DRUGS (3)
  1. SIMEPREVIR [Concomitant]
     Active Substance: SIMEPREVIR
  2. SOVALDI [Suspect]
     Active Substance: SOFOSBUVIR
     Indication: HEPATITIS C
     Route: 065
  3. RIBAVIRIN. [Concomitant]
     Active Substance: RIBAVIRIN

REACTIONS (2)
  - Blood creatine phosphokinase MB increased [Not Recovered/Not Resolved]
  - Blood creatinine increased [Recovered/Resolved]
